FAERS Safety Report 5918736-X (Version None)
Quarter: 2008Q4

REPORT INFORMATION
  Report Type: 
  Country: None (occurrence: None)
  Receive Date: 20081015
  Receipt Date: 20080710
  Transmission Date: 20090506
  Serious: No
  Sender: FDA-Public Use
  Company Number: US-ASTRAZENECA-2008UW13855

PATIENT
  Age: 27 Year
  Sex: Female

DRUGS (4)
  1. SYMBICORT [Suspect]
     Dosage: 160/4.5
     Route: 055
     Dates: start: 20080101
  2. FLOVENT [Concomitant]
  3. SEREVENT [Concomitant]
  4. SINGULAIR [Concomitant]

REACTIONS (2)
  - DYSPNOEA [None]
  - WHEEZING [None]
